FAERS Safety Report 12472273 (Version 1)
Quarter: 2016Q2

REPORT INFORMATION
  Report Type: Spontaneous
  Country: US (occurrence: US)
  Receive Date: 20160616
  Receipt Date: 20160616
  Transmission Date: 20160815
  Serious: Yes (Hospitalization, Other)
  Sender: FDA-Public Use
  Company Number: US-ASTRAZENECA-2016SE62099

PATIENT

DRUGS (5)
  1. ANASTROZOLE. [Suspect]
     Active Substance: ANASTROZOLE
     Route: 048
  2. FASLODEX [Suspect]
     Active Substance: FULVESTRANT
     Route: 030
  3. FEMARA [Concomitant]
     Active Substance: LETROZOLE
  4. XELODA [Concomitant]
     Active Substance: CAPECITABINE
  5. IBRANCE [Suspect]
     Active Substance: PALBOCICLIB
     Dosage: 125.0MG UNKNOWN
     Route: 048

REACTIONS (6)
  - Metastases to liver [Unknown]
  - Road traffic accident [Unknown]
  - Therapy cessation [Unknown]
  - Malaise [Unknown]
  - Neutropenia [Unknown]
  - Pneumonia [Unknown]
